FAERS Safety Report 4529875-2 (Version None)
Quarter: 2004Q4

REPORT INFORMATION
  Report Type: 
  Country: None (occurrence: None)
  Receive Date: 20041217
  Receipt Date: 20041110
  Transmission Date: 20050328
  Serious: Yes (Life-Threatening)
  Sender: FDA-Public Use
  Company Number: DE-NOVOPROD-240442

PATIENT
  Age: 8 Year
  Sex: Female

DRUGS (1)
  1. ACTRAPID [Suspect]
     Indication: INSULIN TOLERANCE TEST
     Dosage: .05 IU/KG, UNK

REACTIONS (18)
  - ACIDOSIS [None]
  - ARRHYTHMIA [None]
  - BLOOD GLUCOSE DECREASED [None]
  - CARDIAC ARREST [None]
  - CONVULSION [None]
  - CYANOSIS [None]
  - DIZZINESS [None]
  - EMOTIONAL DISTRESS [None]
  - ENZYME ABNORMALITY [None]
  - EXTUBATION [None]
  - HYPERHIDROSIS [None]
  - HYPOKALAEMIA [None]
  - LOSS OF CONSCIOUSNESS [None]
  - PALLOR [None]
  - PSYCHOTIC DISORDER [None]
  - PULSE ABSENT [None]
  - VENTRICULAR FLUTTER [None]
  - VENTRICULAR TACHYCARDIA [None]
